FAERS Safety Report 11861784 (Version 2)
Quarter: 2016Q1

REPORT INFORMATION
  Report Type: Report from Study
  Country: US (occurrence: US)
  Receive Date: 20151222
  Receipt Date: 20160106
  Transmission Date: 20160526
  Serious: Yes (Hospitalization)
  Sender: FDA-Public Use
  Company Number: US-BIOGEN-2013BI097241

PATIENT
  Age: 56 Year
  Sex: Female

DRUGS (2)
  1. AVONEX [Suspect]
     Active Substance: INTERFERON BETA-1A
     Route: 030
     Dates: start: 20120901
  2. AVONEX [Suspect]
     Active Substance: INTERFERON BETA-1A
     Indication: MULTIPLE SCLEROSIS
     Route: 030
     Dates: start: 19970303, end: 20120830

REACTIONS (16)
  - Hallucination [Recovered/Resolved]
  - Mobility decreased [Not Recovered/Not Resolved]
  - Dysgraphia [Not Recovered/Not Resolved]
  - Asthenia [Not Recovered/Not Resolved]
  - Musculoskeletal disorder [Not Recovered/Not Resolved]
  - Fall [Recovered/Resolved]
  - Neuralgia [Unknown]
  - Motor dysfunction [Not Recovered/Not Resolved]
  - Urinary tract infection [Recovered/Resolved]
  - Aphasia [Recovered/Resolved]
  - Sepsis [Recovered/Resolved]
  - Hemiparesis [Not Recovered/Not Resolved]
  - Drug effect delayed [Recovered/Resolved]
  - Multiple sclerosis relapse [Recovered/Resolved]
  - General physical health deterioration [Not Recovered/Not Resolved]
  - Head injury [Recovered/Resolved]

NARRATIVE: CASE EVENT DATE: 1997
